FAERS Safety Report 5530318-0 (Version None)
Quarter: 2007Q4

REPORT INFORMATION
  Report Type: 
  Country: None (occurrence: None)
  Receive Date: 20071130
  Receipt Date: 20070425
  Transmission Date: 20080405
  Serious: No
  Sender: FDA-Public Use
  Company Number: A0648758A

PATIENT

DRUGS (1)
  1. AMOXICILLIN + CLAVULANATE POTASSIUM [Suspect]
     Indication: DRUG USE FOR UNKNOWN INDICATION
     Dosage: 1TAB TWICE PER DAY
     Dates: start: 20070422

REACTIONS (2)
  - DRUG EXPOSURE VIA BREAST MILK [None]
  - RASH [None]
